FAERS Safety Report 9882837 (Version 3)
Quarter: 2014Q1

REPORT INFORMATION
  Report Type: Report from Study
  Country: IL (occurrence: IL)
  Receive Date: 20140207
  Receipt Date: 20140225
  Transmission Date: 20141002
  Serious: Yes (Hospitalization)
  Sender: FDA-Public Use
  Company Number: IL-B.I. PHARMACEUTICALS,INC./RIDGEFIELD-2013-BI-43514BI

PATIENT
  Age: 80 Year
  Sex: Female
  Weight: 73 kg

DRUGS (7)
  1. BIBW 2992 [Suspect]
     Indication: NON-SMALL CELL LUNG CANCER
     Dosage: 30 MG
     Route: 048
     Dates: start: 20131114, end: 20131215
  2. CILOXAN [Concomitant]
     Indication: EYE INFECTION
     Dosage: ROUTE: SOLUTION EYE, DAILY DOSE: PRN DROP
     Route: 065
     Dates: start: 20131216, end: 20131221
  3. SYNTOMYCINE [Concomitant]
     Indication: EYE INFECTION
     Dosage: ROUTE: EYE
     Route: 065
     Dates: start: 20131216, end: 20131221
  4. STOPIT [Concomitant]
     Indication: DIARRHOEA
     Dosage: DAILY DOSE: PRN
     Route: 048
     Dates: start: 20131119, end: 20131129
  5. DEXAMETHASONE [Concomitant]
     Indication: FATIGUE
     Dosage: 2 MG
     Route: 048
     Dates: start: 20131127, end: 20131217
  6. DEXAMETHASONE [Concomitant]
     Indication: DECREASED APPETITE
  7. ORALTEN [Concomitant]
     Indication: STOMATITIS
     Dosage: 30 MG
     Route: 048
     Dates: start: 20131127, end: 20131130

REACTIONS (1)
  - Drug-induced liver injury [Not Recovered/Not Resolved]
